FAERS Safety Report 24533207 (Version 1)
Quarter: 2024Q4

REPORT INFORMATION
  Report Type: Other
  Country: ID (occurrence: ID)
  Receive Date: 20241022
  Receipt Date: 20241022
  Transmission Date: 20250115
  Serious: Yes (Other)
  Sender: COREPHARMA LLC
  Company Number: ID-CorePharma LLC-2163526

PATIENT
  Age: 46 Year
  Sex: Female

DRUGS (4)
  1. AMLODIPINE BESYLATE [Suspect]
     Active Substance: AMLODIPINE BESYLATE
     Indication: Hypertension
  2. CLONIDINE [Concomitant]
     Active Substance: CLONIDINE
  3. CANDESARTAN [Concomitant]
     Active Substance: CANDESARTAN
  4. BISOPROLOL FUMARATE [Concomitant]
     Active Substance: BISOPROLOL FUMARATE

REACTIONS (1)
  - Fibrous dysplasia of jaw [Recovered/Resolved]
